FAERS Safety Report 24713233 (Version 1)
Quarter: 2024Q4

REPORT INFORMATION
  Report Type: Spontaneous
  Country: US (occurrence: US)
  Receive Date: 20241209
  Receipt Date: 20241209
  Transmission Date: 20250115
  Serious: Yes (Other)
  Sender: REGENERON
  Company Number: US-REGENERON PHARMACEUTICALS, INC.-2023-150526

PATIENT
  Sex: Female

DRUGS (2)
  1. EYLEA [Suspect]
     Active Substance: AFLIBERCEPT
     Indication: Neovascular age-related macular degeneration
     Dosage: 2 MG, EVERY 8 WEEKS INTO LEFT EYE (BOTH EYES) (FORMULATION: PFS UNKNOWN)
     Dates: start: 202205
  2. EYLEA [Suspect]
     Active Substance: AFLIBERCEPT
     Dosage: 2 MG, EVERY 8 WEEKS INTO RIGHT EYE (FORMULATION: PFS UNKNOWN)
     Dates: start: 202205

REACTIONS (2)
  - Cataract [Unknown]
  - Vision blurred [Unknown]
